FAERS Safety Report 14750237 (Version 2)
Quarter: 2018Q4

REPORT INFORMATION
  Report Type: Spontaneous
  Country: FR (occurrence: FR)
  Receive Date: 20180412
  Receipt Date: 20181025
  Transmission Date: 20190204
  Serious: Yes (Other)
  Sender: FDA-Public Use
  Company Number: FR-MERCK KGAA-2045612

PATIENT
  Age: 21 Year
  Sex: Female

DRUGS (1)
  1. EUTHYROX [Suspect]
     Active Substance: LEVOTHYROXINE SODIUM
     Indication: PRODUCT USED FOR UNKNOWN INDICATION

REACTIONS (35)
  - Malaise [None]
  - Irritability [None]
  - Blood thyroid stimulating hormone decreased [None]
  - Lymphocyte count decreased [None]
  - C-reactive protein increased [None]
  - Dizziness [None]
  - Loss of libido [None]
  - White blood cell count [None]
  - Bipolar disorder [None]
  - Pain [None]
  - Job dissatisfaction [None]
  - Self esteem decreased [None]
  - Palpitations [None]
  - Anxiety [None]
  - Fatigue [None]
  - Personality change [None]
  - Disturbance in attention [None]
  - Discomfort [None]
  - Weight increased [None]
  - Decreased interest [None]
  - Tremor [None]
  - Emotional distress [None]
  - Depression [None]
  - Sleep disorder [None]
  - Panic attack [None]
  - Paranoia [None]
  - Nervousness [None]
  - Feeling abnormal [None]
  - Headache [None]
  - Vomiting [None]
  - Dyspnoea [None]
  - Social avoidant behaviour [None]
  - Tachycardia [None]
  - Nausea [None]
  - Thyroxine free increased [None]

NARRATIVE: CASE EVENT DATE: 20170720
